FAERS Safety Report 9510167 (Version 1)
Quarter: 2013Q3

REPORT INFORMATION
  Report Type: Spontaneous
  Country: US (occurrence: US)
  Receive Date: 20130909
  Receipt Date: 20130909
  Transmission Date: 20140515
  Serious: No
  Sender: FDA-Public Use
  Company Number: US-BRISTOL-MYERS SQUIBB COMPANY-18727636

PATIENT
  Age: 11 Year
  Sex: Male
  Weight: 50.79 kg

DRUGS (4)
  1. ABILIFY TABS 5 MG [Suspect]
     Dosage: INCREASED FROM 2MG TO 5MG
     Dates: start: 201205
  2. PAXIL [Concomitant]
  3. ADDERALL [Concomitant]
  4. CLONIDINE [Concomitant]

REACTIONS (1)
  - Weight increased [Unknown]
